FAERS Safety Report 7380815-0 (Version None)
Quarter: 2011Q1

REPORT INFORMATION
  Report Type: 
  Country: None (occurrence: None)
  Receive Date: 20110329
  Receipt Date: 20110325
  Transmission Date: 20110831
  Serious: Yes (Hospitalization)
  Sender: FDA-Public Use
  Company Number: A0920075A

PATIENT
  Age: 14 Year
  Sex: Female

DRUGS (2)
  1. WELLBUTRIN SR [Suspect]
     Route: 048
     Dates: start: 19980101, end: 19980101
  2. LITHIUM [Concomitant]

REACTIONS (3)
  - INTENTIONAL OVERDOSE [None]
  - WRONG DRUG ADMINISTERED [None]
  - SUICIDE ATTEMPT [None]
